FAERS Safety Report 8409026 (Version 4)
Quarter: 2012Q4

REPORT INFORMATION
  Report Type: 
  Country: GB (occurrence: GB)
  Receive Date: 20120216
  Receipt Date: 20120927
  Transmission Date: 20130627
  Serious: Yes (Death, Other)
  Sender: FDA-Public Use
  Company Number: PHFR2012GB001067

PATIENT
  Age: 36 Year
  Sex: Male

DRUGS (8)
  1. CLOZAPINE [Suspect]
     Indication: SCHIZOPHRENIA
     Dosage: 450 mg
     Route: 048
     Dates: end: 20120109
  2. ARIPIPRAZOLE [Suspect]
     Indication: SCHIZOPHRENIA
     Dosage: 5 mg, UNK
     Route: 048
  3. ZOCOR [Suspect]
     Route: 048
  4. CLONAZEPAM [Concomitant]
     Dosage: UNK UKN, UNK
  5. FOLIC ACID [Concomitant]
  6. OMEPRAZOLE [Concomitant]
     Dosage: UNK UKN, UNK
  7. VALPROATE SODIUM [Concomitant]
     Dosage: UNK UKN, UNK
  8. WARFARIN [Concomitant]
     Dosage: UNK UKN, UNK

REACTIONS (12)
  - Peritonitis [Fatal]
  - Large intestine perforation [Fatal]
  - Neuroleptic malignant syndrome [Fatal]
  - Blood creatine phosphokinase increased [Fatal]
  - Circulatory collapse [Unknown]
  - Hepatic function abnormal [Unknown]
  - Aspartate aminotransferase increased [Unknown]
  - Alanine aminotransferase increased [Unknown]
  - Renal impairment [Unknown]
  - Haemoglobin decreased [Unknown]
  - Sepsis [Unknown]
  - Malaise [Unknown]
